FAERS Safety Report 4984391-9 (Version None)
Quarter: 2006Q2

REPORT INFORMATION
  Report Type: 
  Country: None (occurrence: None)
  Receive Date: 20060420
  Receipt Date: 20060412
  Transmission Date: 20061013
  Serious: Yes (Disabling)
  Sender: FDA-Public Use
  Company Number: 2006050304

PATIENT
  Age: 59 Year
  Sex: Female
  Weight: 70 kg

DRUGS (6)
  1. LYRICA [Suspect]
     Indication: NEURALGIA
     Dosage: 300 MG (150 MG, 2 IN 1 D), ORAL
     Route: 048
     Dates: start: 20051216, end: 20060306
  2. IBUPROFEN [Concomitant]
  3. OYBUTYNIN (OXYBUTYNIN) [Concomitant]
  4. CO-CODAMOL (CODEIN PHOSPHATE, PARACETAMOL) [Concomitant]
  5. SIMVASTATIN [Concomitant]
  6. OMEPRAZOLE [Concomitant]

REACTIONS (8)
  - ABDOMINAL DISTENSION [None]
  - DRY MOUTH [None]
  - DRY SKIN [None]
  - HYPOAESTHESIA [None]
  - JOINT SWELLING [None]
  - PARAESTHESIA [None]
  - RASH [None]
  - WEIGHT INCREASED [None]
